FAERS Safety Report 16645598 (Version 2)
Quarter: 2019Q3

REPORT INFORMATION
  Report Type: Report from Study
  Country: GB (occurrence: GB)
  Receive Date: 20190730
  Receipt Date: 20190806
  Transmission Date: 20191004
  Serious: Yes (Other)
  Sender: FDA-Public Use
  Company Number: GB-AUROBINDO-AUR-APL-2019-043113

PATIENT

DRUGS (4)
  1. THYROXINE [Concomitant]
     Active Substance: LEVOTHYROXINE
     Indication: PRODUCT USED FOR UNKNOWN INDICATION
     Dosage: UNK
     Route: 065
  2. VENLAFAXINE [Suspect]
     Active Substance: VENLAFAXINE HYDROCHLORIDE
     Indication: ANTIDEPRESSANT THERAPY
  3. LITHIUM. [Suspect]
     Active Substance: LITHIUM
     Indication: PSYCHOTHERAPY
     Dosage: 408 MILLIGRAM, ONCE A DAY
     Route: 065
  4. VENLAFAXINE [Suspect]
     Active Substance: VENLAFAXINE HYDROCHLORIDE
     Indication: PSYCHOTHERAPY
     Dosage: 225 MILLIGRAM, ONCE A DAY
     Route: 065

REACTIONS (8)
  - Drug interaction [Unknown]
  - Action tremor [Unknown]
  - Nervous system disorder [Unknown]
  - Ataxia [Unknown]
  - Myoclonus [Unknown]
  - Cerebellar ataxia [Unknown]
  - Postural tremor [Unknown]
  - Tremor [Unknown]
